FAERS Safety Report 7146628-X (Version None)
Quarter: 2010Q4

REPORT INFORMATION
  Report Type: 
  Country: None (occurrence: None)
  Receive Date: 20101208
  Receipt Date: 20101201
  Transmission Date: 20110411
  Serious: Yes (Hospitalization)
  Sender: FDA-Public Use
  Company Number: US-US-EMD SERONO, INC.-7024599

PATIENT
  Sex: Female

DRUGS (5)
  1. REBIF [Suspect]
     Indication: MULTIPLE SCLEROSIS
     Route: 058
     Dates: start: 20091130, end: 20100101
  2. AMBIEN [Concomitant]
     Indication: SLEEP DISORDER
  3. HYDROCODONE [Concomitant]
     Indication: PAIN
  4. SOMA [Concomitant]
     Indication: MUSCLE SPASTICITY
  5. POLYGAM [Concomitant]
     Indication: MULTIPLE SCLEROSIS
     Dates: start: 20080101, end: 20100701

REACTIONS (4)
  - GENERAL PHYSICAL HEALTH DETERIORATION [None]
  - SUBARACHNOID HAEMORRHAGE [None]
  - URINARY TRACT INFECTION [None]
  - UROSEPSIS [None]
